FAERS Safety Report 15074657 (Version 1)
Quarter: 2018Q2

REPORT INFORMATION
  Report Type: Report from Study
  Country: US (occurrence: US)
  Receive Date: 20180627
  Receipt Date: 20180627
  Transmission Date: 20180711
  Serious: No
  Sender: FDA-Public Use
  Company Number: US-SAOL THERAPEUTICS-2017SAO01100

PATIENT
  Age: 64 Year
  Sex: Female

DRUGS (12)
  1. CLONIDINE. [Suspect]
     Active Substance: CLONIDINE
     Dosage: 83.95 ?G, \DAY
     Route: 037
     Dates: start: 20111229, end: 20120323
  2. DILAUDID [Suspect]
     Active Substance: HYDROMORPHONE HYDROCHLORIDE
     Dosage: 1.9567 MG, \DAY
     Route: 037
     Dates: start: 20120323
  3. BUPIVACAINE. [Suspect]
     Active Substance: BUPIVACAINE
     Dosage: 19.567 MG, \DAY
     Route: 037
     Dates: start: 20120323
  4. COMPOUNDED BACLOFEN [Suspect]
     Active Substance: BACLOFEN
     Dosage: 55.08 ?G, \DAY
     Route: 037
     Dates: start: 20111229
  5. DILAUDID [Suspect]
     Active Substance: HYDROMORPHONE HYDROCHLORIDE
     Dosage: 1.1015 MG, \DAY
     Route: 037
     Dates: start: 20111229
  6. BUPIVACAINE. [Suspect]
     Active Substance: BUPIVACAINE
     Dosage: 11.015 MG, \DAY
     Route: 037
     Dates: start: 20111229
  7. BUPIVACAINE. [Suspect]
     Active Substance: BUPIVACAINE
     Dosage: 16.790 MG, \DAY
     Route: 037
     Dates: start: 20111229, end: 20120323
  8. COMPOUNDED BACLOFEN [Suspect]
     Active Substance: BACLOFEN
     Dosage: 97.84 ?G, \DAY
     Route: 037
     Dates: start: 20120323
  9. COMPOUNDED BACLOFEN [Suspect]
     Active Substance: BACLOFEN
     Dosage: 83.95 ?G, \DAY
     Route: 037
     Dates: start: 20111229, end: 20120323
  10. DILAUDID [Suspect]
     Active Substance: HYDROMORPHONE HYDROCHLORIDE
     Dosage: 1.679 MG, \DAY
     Route: 037
     Dates: start: 20111229, end: 20120323
  11. CLONIDINE. [Suspect]
     Active Substance: CLONIDINE
     Dosage: 55.08 ?G, \DAY
     Route: 037
     Dates: start: 20111229
  12. CLONIDINE. [Suspect]
     Active Substance: CLONIDINE
     Dosage: 97.84 ?G, \DAY
     Route: 037
     Dates: start: 20120323

REACTIONS (1)
  - Infusion site pain [Recovered/Resolved]

NARRATIVE: CASE EVENT DATE: 20120323
